FAERS Safety Report 8357027-7 (Version None)
Quarter: 2012Q2

REPORT INFORMATION
  Report Type: 
  Country: None (occurrence: None)
  Receive Date: 20120514
  Receipt Date: 20120507
  Transmission Date: 20120825
  Serious: Yes (Other)
  Sender: FDA-Public Use
  Company Number: JP-VERTEX PHARMACEUTICALS INC.-AE-2012-006462

PATIENT
  Age: 72 Year
  Sex: Male

DRUGS (10)
  1. ALLOPURINOL [Concomitant]
     Route: 048
  2. TELAPREVIR [Suspect]
     Indication: HEPATITIS C
     Route: 048
     Dates: start: 20120306, end: 20120316
  3. REBETOL [Concomitant]
     Indication: HEPATITIS C
     Route: 048
     Dates: start: 20120306, end: 20120316
  4. MIGLITOL [Concomitant]
     Route: 048
  5. CANDESARTAN CILEXETIL [Concomitant]
     Route: 048
  6. PEG-INTRON [Concomitant]
     Indication: HEPATITIS C
     Route: 058
     Dates: start: 20120306, end: 20120313
  7. AMARYL [Concomitant]
     Route: 048
  8. SITAGLIPTIN PHOSPHATE [Concomitant]
     Route: 048
  9. ACTOS [Concomitant]
     Route: 048
  10. URSO 250 [Concomitant]

REACTIONS (1)
  - RENAL IMPAIRMENT [None]
